FAERS Safety Report 9521005 (Version 2)
Quarter: 2013Q4

REPORT INFORMATION
  Report Type: Spontaneous
  Country: JP (occurrence: JP)
  Receive Date: 20130913
  Receipt Date: 20131015
  Transmission Date: 20140711
  Serious: Yes (Other)
  Sender: FDA-Public Use
  Company Number: JP-BAYER-2013-110708

PATIENT
  Age: 32 Year
  Sex: Female

DRUGS (1)
  1. YAZ [Suspect]
     Indication: DYSMENORRHOEA
     Dosage: UNK
     Route: 048
     Dates: start: 20120910, end: 20130906

REACTIONS (3)
  - Retinal artery occlusion [Recovered/Resolved]
  - Retinal vein occlusion [Recovered/Resolved]
  - Visual acuity reduced [Recovered/Resolved]
